FAERS Safety Report 7981700-3 (Version None)
Quarter: 2011Q4

REPORT INFORMATION
  Report Type: 
  Country: None (occurrence: None)
  Receive Date: 20111213
  Receipt Date: 20110601
  Transmission Date: 20120403
  Serious: No
  Sender: FDA-Public Use
  Company Number: USA/USA/11/0018584

PATIENT
  Age: 56 Year
  Sex: Male

DRUGS (6)
  1. NITROSTAT (GLUCETYL TRINITRATE) [Concomitant]
  2. METOPROLOL TARTRATE [Concomitant]
  3. PRAVASTATIN SODIUM [Suspect]
     Indication: BLOOD CHOLESTEROL
     Dosage: 80 MG, 1 IN 1 D, ORAL
     Route: 048
     Dates: start: 20110503
  4. ISOSORBIDE MONONITRATE [Concomitant]
  5. AMLODIPINE BESYLATE [Concomitant]
  6. LOSARTAN /HCTZ (HYZAAR) [Concomitant]

REACTIONS (2)
  - BLOOD CHOLESTEROL INCREASED [None]
  - PRODUCT QUALITY ISSUE [None]
